FAERS Safety Report 16677014 (Version 1)
Quarter: 2019Q3

REPORT INFORMATION
  Report Type: Other
  Country: CN (occurrence: CN)
  Receive Date: 20190807
  Receipt Date: 20190807
  Transmission Date: 20191004
  Serious: Yes (Hospitalization)
  Sender: FDA-Public Use
  Company Number: CN-JIANGSU HENGRUI MEDICINE CO., LTD.-2072839

PATIENT
  Age: 63 Year
  Sex: Female
  Weight: 65 kg

DRUGS (4)
  1. HR-BLTN-III-MBC-C [PYROTINIB] [Suspect]
     Active Substance: PYROTINIB
     Route: 048
     Dates: start: 20190615, end: 20190706
  2. DOCETAXEL INJECTION USP, 20 MG/0.5 ML, SINGLE-DOSE VIAL, TWO-VIAL FORM [Suspect]
     Active Substance: DOCETAXEL
     Indication: BREAST CANCER
     Route: 041
     Dates: start: 20190615, end: 20190706
  3. NIFEDIPINE. [Concomitant]
     Active Substance: NIFEDIPINE
  4. TRASTUZUMAB INJECTION [Suspect]
     Active Substance: TRASTUZUMAB
     Route: 041
     Dates: start: 20190615, end: 20190706

REACTIONS (1)
  - Electrolyte imbalance [Recovered/Resolved]

NARRATIVE: CASE EVENT DATE: 20190701
